FAERS Safety Report 9460689 (Version 4)
Quarter: 2013Q4

REPORT INFORMATION
  Report Type: Spontaneous
  Country: DE (occurrence: None)
  Receive Date: 20130813
  Receipt Date: 20131217
  Transmission Date: 20140711
  Serious: Yes (Other)
  Sender: FDA-Public Use
  Company Number: AUR-APL-2013-06649

PATIENT
  Age: 58 Year
  Sex: Female
  Weight: 78 kg

DRUGS (6)
  1. METOPROLOL (METOPROLOL) [Suspect]
     Indication: PRODUCT USED FOR UNKNOWN INDICATION
     Dosage: (47.5 MG, 1 D), ORAL
     Route: 048
     Dates: start: 20110701
  2. AROMASIN (EXEMESTANE) [Suspect]
     Indication: BREAST CANCER
     Dosage: (25 MG, 1 D), ORAL
     Route: 048
     Dates: start: 20110426
  3. MARCUMAR (PHENPROCOUMON) [Suspect]
     Indication: CARDIAC DISORDER
     Route: 048
     Dates: start: 20110701
  4. SALVIA OFFICINALIS LEAF [Suspect]
     Indication: FLUSHING
     Dates: start: 20120715
  5. SALVIA OFFICINALIS LEAF [Suspect]
     Indication: CHILLS
     Dates: start: 20120715
  6. LOSARTAN (LOSARTAN) [Suspect]
     Indication: HYPERTENSION
     Route: 048
     Dates: start: 20020101

REACTIONS (3)
  - Thoracic vertebral fracture [None]
  - Osteoporosis [None]
  - Pain [None]
